FAERS Safety Report 4823448-X (Version None)
Quarter: 2005Q4

REPORT INFORMATION
  Report Type: 
  Country: None (occurrence: None)
  Receive Date: 20051109
  Receipt Date: 20051028
  Transmission Date: 20060501
  Serious: Yes (Congenital Anomaly)
  Sender: FDA-Public Use
  Company Number: PHEH2005US11955

PATIENT
  Age: 18 Month
  Sex: Male

DRUGS (1)
  1. LOTREL [Suspect]
     Route: 064

REACTIONS (1)
  - RENAL DISORDER [None]
